FAERS Safety Report 24137079 (Version 2)
Quarter: 2024Q3

REPORT INFORMATION
  Report Type: Spontaneous
  Country: US (occurrence: US)
  Receive Date: 20240725
  Receipt Date: 20240808
  Transmission Date: 20241017
  Serious: Yes (Other)
  Sender: ROCHE
  Company Number: US-ROCHE-10000033833

PATIENT
  Age: 84 Year
  Sex: Female

DRUGS (1)
  1. VABYSMO [Suspect]
     Active Substance: FARICIMAB\FARICIMAB-SVOA
     Indication: Neovascular age-related macular degeneration
     Dosage: 2ND INJECTION- 08/JUL/2024
     Route: 065
     Dates: start: 20240525

REACTIONS (3)
  - Endophthalmitis [Recovered/Resolved]
  - Off label use [Unknown]
  - Vitritis [Unknown]

NARRATIVE: CASE EVENT DATE: 20240708
